FAERS Safety Report 11793356 (Version 2)
Quarter: 2015Q4

REPORT INFORMATION
  Report Type: Other
  Country: US (occurrence: US)
  Receive Date: 20151202
  Receipt Date: 20151221
  Transmission Date: 20160305
  Serious: Yes (Hospitalization)
  Sender: FDA-Public Use
  Company Number: US-ACORDA-ACO_119538_2015

PATIENT
  Age: 74 Year
  Sex: Female
  Weight: 104.31 kg

DRUGS (1)
  1. AMPYRA [Suspect]
     Active Substance: DALFAMPRIDINE
     Indication: MULTIPLE SCLEROSIS
     Dosage: 10 MG, Q 12 HRS
     Route: 048
     Dates: end: 2015

REACTIONS (4)
  - Fracture [Unknown]
  - Cardiac disorder [Unknown]
  - Heart rate increased [Unknown]
  - Fall [Unknown]

NARRATIVE: CASE EVENT DATE: 201511
